FAERS Safety Report 6994262-4 (Version None)
Quarter: 2010Q3

REPORT INFORMATION
  Report Type: 
  Country: None (occurrence: None)
  Receive Date: 20100917
  Receipt Date: 20070521
  Transmission Date: 20110219
  Serious: Yes (Other)
  Sender: FDA-Public Use
  Company Number: US-ASTRAZENECA-2006UW25439

PATIENT
  Age: 44 Year
  Sex: Male
  Weight: 85 kg

DRUGS (11)
  1. SEROQUEL [Suspect]
     Indication: SLEEP DISORDER
     Route: 048
     Dates: start: 20050325
  2. SEROQUEL [Suspect]
     Indication: AFFECTIVE DISORDER
     Route: 048
     Dates: start: 20050325
  3. SEROQUEL [Suspect]
     Route: 048
  4. SEROQUEL [Suspect]
     Route: 048
  5. METHADONE [Concomitant]
     Indication: PAIN
     Dosage: DOSE 10 MG TO 50 MG
     Dates: start: 19980331
  6. AMITRIPTYLINE HCL [Concomitant]
     Indication: INSOMNIA
     Dates: start: 19980331
  7. PROZAC [Concomitant]
     Indication: DEPRESSION
     Dosage: DOSE 30MG TO 40 MG
     Dates: start: 19980331
  8. XANAX [Concomitant]
     Indication: ANXIETY
     Dates: start: 19980331
  9. AMBIEN [Concomitant]
     Indication: SLEEP DISORDER
     Dosage: DOSE ONE IF REQUIRED
  10. SUDAFED 12 HOUR [Concomitant]
     Indication: NASAL CONGESTION
  11. ADVIL LIQUI-GELS [Concomitant]
     Dosage: DOSE 200MG TO 600 MG AS REQUIRED

REACTIONS (1)
  - HYPERGLYCAEMIA [None]
